FAERS Safety Report 8161070-0 (Version None)
Quarter: 2012Q1

REPORT INFORMATION
  Report Type: 
  Country: None (occurrence: None)
  Receive Date: 20120224
  Receipt Date: 20120214
  Transmission Date: 20120608
  Serious: Yes (Other)
  Sender: FDA-Public Use
  Company Number: IL-PAR PHARMACEUTICAL, INC-2012SCPR004219

PATIENT

DRUGS (9)
  1. SERTINDOLE [Suspect]
     Dosage: 16 MG, / DAY
     Route: 065
  2. SERTINDOLE [Suspect]
     Indication: SCHIZOPHRENIA, PARANOID TYPE
     Dosage: 4 MG, / DAY
     Route: 065
  3. HALOPERIDOL [Concomitant]
     Indication: SCHIZOPHRENIA, PARANOID TYPE
     Dosage: 15 MG, / DAY
     Route: 065
  4. OLANZAPINE [Concomitant]
     Indication: SCHIZOPHRENIA, PARANOID TYPE
     Dosage: 15 MG, / DAY
  5. RISPERIDONE [Suspect]
     Dosage: 6 MG, / DAY
     Route: 065
  6. AMISULPRIDE [Concomitant]
     Indication: SCHIZOPHRENIA, PARANOID TYPE
     Dosage: 1000 MG, / DAY
     Route: 065
  7. RISPERIDONE [Suspect]
     Dosage: 2 MG, / DAY
     Route: 065
  8. RISPERIDONE [Suspect]
     Indication: SCHIZOPHRENIA, PARANOID TYPE
     Dosage: 3 MG, / DAY
     Route: 065
  9. RISPERIDONE [Suspect]
     Dosage: 5 MG, / DAY
     Route: 065

REACTIONS (1)
  - PLEUROTHOTONUS [None]
